FAERS Safety Report 7705274-7 (Version None)
Quarter: 2011Q3

REPORT INFORMATION
  Report Type: 
  Country: None (occurrence: None)
  Receive Date: 20110824
  Receipt Date: 20110502
  Transmission Date: 20111222
  Serious: No
  Sender: FDA-Public Use
  Company Number: US-MYLANLABS-2011S1008894

PATIENT
  Sex: Female

DRUGS (1)
  1. VALACYCLOVIR HYDROCHLORIDE [Suspect]
     Indication: ORAL HERPES
     Dates: start: 20101101, end: 20110101

REACTIONS (4)
  - DRUG INEFFECTIVE [None]
  - IMPAIRED HEALING [None]
  - HERPES VIRUS INFECTION [None]
  - HERPES OPHTHALMIC [None]
